FAERS Safety Report 4796061-0 (Version None)
Quarter: 2005Q4

REPORT INFORMATION
  Report Type: 
  Country: None (occurrence: None)
  Receive Date: 20051007
  Receipt Date: 20050926
  Transmission Date: 20060501
  Serious: Yes (Other)
  Sender: FDA-Public Use
  Company Number: HQWYE701828SEP05

PATIENT
  Age: 55 Year
  Sex: Female

DRUGS (4)
  1. PREMPRO [Suspect]
     Indication: HOT FLUSH
     Dosage: UNK
     Route: 065
  2. PREMPRO [Suspect]
     Indication: MENOPAUSAL SYMPTOMS
     Dosage: UNK
     Route: 065
  3. CYCRIN [Suspect]
     Dosage: UNK
     Route: 065
  4. ESTRACE [Suspect]
     Dosage: UNK
     Route: 065

REACTIONS (7)
  - BREAST CANCER FEMALE [None]
  - BREAST CANCER METASTATIC [None]
  - HEPATIC NEOPLASM MALIGNANT [None]
  - OESTROGEN RECEPTOR ASSAY POSITIVE [None]
  - PROGESTERONE RECEPTOR ASSAY POSITIVE [None]
  - RECURRENT CANCER [None]
  - SPINAL DISORDER [None]
